FAERS Safety Report 5938473-5 (Version None)
Quarter: 2008Q4

REPORT INFORMATION
  Report Type: 
  Country: None (occurrence: None)
  Receive Date: 20081103
  Receipt Date: 20081022
  Transmission Date: 20090506
  Serious: Yes (Hospitalization, Other)
  Sender: FDA-Public Use
  Company Number: GR-AMGEN-UK310997

PATIENT
  Sex: Male
  Weight: 60 kg

DRUGS (3)
  1. NEULASTA [Suspect]
     Indication: CHEMOTHERAPY
     Dates: start: 20080703, end: 20080903
  2. DOCETAXEL [Suspect]
     Dates: start: 20080702
  3. CARBOPLATIN [Suspect]
     Dates: start: 20080702

REACTIONS (1)
  - NON-SMALL CELL LUNG CANCER [None]
